FAERS Safety Report 19463246 (Version 1)
Quarter: 2021Q2

REPORT INFORMATION
  Report Type: Spontaneous
  Country: FR (occurrence: FR)
  Receive Date: 20210625
  Receipt Date: 20210625
  Transmission Date: 20210717
  Serious: Yes (Death, Hospitalization, Congenital Anomaly, Other)
  Sender: FDA-Public Use
  Company Number: FR-ABBVIE-21K-056-3961640-00

PATIENT
  Sex: Male

DRUGS (3)
  1. ORTENAL [Suspect]
     Active Substance: AMPHETAMINE SULFATE\PHENOBARBITAL
     Indication: MATERNAL EXPOSURE TIMING UNSPECIFIED
     Route: 064
  2. GARDENAL [Suspect]
     Active Substance: PHENOBARBITAL
     Indication: MATERNAL EXPOSURE TIMING UNSPECIFIED
     Route: 064
  3. DEPAKINE [Suspect]
     Active Substance: VALPROATE SODIUM
     Indication: MATERNAL EXPOSURE TIMING UNSPECIFIED
     Route: 064

REACTIONS (40)
  - Limb malformation [Unknown]
  - Aggression [Unknown]
  - Strabismus [Unknown]
  - Death [Fatal]
  - Fine motor skill dysfunction [Unknown]
  - Dysmorphism [Unknown]
  - Cataract [Unknown]
  - Psychomotor retardation [Unknown]
  - Language disorder [Unknown]
  - Encephalopathy [Unknown]
  - Psychomotor skills impaired [Unknown]
  - Benign prostatic hyperplasia [Unknown]
  - Gross motor delay [Unknown]
  - Pyramidal tract syndrome [Unknown]
  - Muscle spasticity [Unknown]
  - Microcephaly [Unknown]
  - Urinary retention [Unknown]
  - Constipation [Unknown]
  - Epilepsy [Unknown]
  - Generalised anxiety disorder [Unknown]
  - Coordination abnormal [Unknown]
  - Retinal detachment [Unknown]
  - Escherichia infection [Unknown]
  - Autism spectrum disorder [Unknown]
  - Foetal exposure during pregnancy [Unknown]
  - Talipes [Unknown]
  - Cryptorchism [Unknown]
  - Cystitis interstitial [Unknown]
  - Psychomotor hyperactivity [Unknown]
  - Behaviour disorder [Unknown]
  - Clinodactyly [Unknown]
  - Musculoskeletal stiffness [Unknown]
  - Neonatal disorder [Unknown]
  - Tendinous contracture [Unknown]
  - Intellectual disability [Unknown]
  - Choreoathetosis [Unknown]
  - Developmental delay [Unknown]
  - Prostatitis [Unknown]
  - Inguinal hernia [Recovered/Resolved]
  - Dysphagia [Unknown]

NARRATIVE: CASE EVENT DATE: 20200602
